FAERS Safety Report 8002042-6 (Version None)
Quarter: 2011Q4

REPORT INFORMATION
  Report Type: 
  Country: None (occurrence: None)
  Receive Date: 20111222
  Receipt Date: 20111219
  Transmission Date: 20120403
  Serious: Yes (Other)
  Sender: FDA-Public Use
  Company Number: US-ABBOTT-11P-163-0844773-00

PATIENT
  Age: 30 Year
  Sex: Female

DRUGS (8)
  1. REYATAZ [Suspect]
     Indication: ANTIRETROVIRAL THERAPY
     Dosage: DAILY
     Route: 048
     Dates: start: 20110621
  2. ZIAGEN [Suspect]
     Indication: ANTIRETROVIRAL THERAPY
     Dosage: DAILY
     Route: 048
     Dates: end: 20110621
  3. EPIVIR [Suspect]
     Indication: ANTIRETROVIRAL THERAPY
     Dosage: DAILY
     Route: 048
     Dates: end: 20110621
  4. TRUVADA [Suspect]
     Indication: ANTIRETROVIRAL THERAPY
     Dosage: 1 TAB/CAP DAILY
     Route: 048
     Dates: start: 20110621
  5. COCAINE [Concomitant]
     Indication: PRODUCT USED FOR UNKNOWN INDICATION
  6. INTELENCE [Suspect]
     Indication: ANTIRETROVIRAL THERAPY
     Dosage: DAILY
     Route: 048
     Dates: end: 20110621
  7. NORVIR [Suspect]
     Indication: ANTIRETROVIRAL THERAPY
     Dosage: DAILY
     Route: 048
     Dates: start: 20110621
  8. BACTRIM [Concomitant]
     Indication: PRODUCT USED FOR UNKNOWN INDICATION
     Dates: start: 20110621

REACTIONS (3)
  - PREGNANCY [None]
  - ABORTION SPONTANEOUS [None]
  - MATERNAL EXPOSURE DURING PREGNANCY [None]
